FAERS Safety Report 4736243-7 (Version None)
Quarter: 2005Q3

REPORT INFORMATION
  Report Type: 
  Country: None (occurrence: None)
  Receive Date: 20050804
  Receipt Date: 20050804
  Transmission Date: 20060218
  Serious: Yes (Death)
  Sender: FDA-Public Use
  Company Number: None

PATIENT
  Sex: Male
  Weight: 81.2 kg

DRUGS (4)
  1. DAUNORUBICIN HCL [Suspect]
     Indication: ACUTE MYELOID LEUKAEMIA
     Dosage: SEE IMAGE
     Route: 042
     Dates: start: 20050714, end: 20050716
  2. CYTARABINE [Suspect]
     Dosage: SEE IMAGE
     Dates: start: 20050714, end: 20050718
  3. DAUNORUBICIN HCL [Suspect]
     Dosage: SEE IMAGE
     Dates: start: 20050714, end: 20050716
  4. CYTARABINE [Suspect]
     Dosage: SEE IMAGE
     Dates: start: 20050714, end: 20050718

REACTIONS (11)
  - BLAST CELLS PRESENT [None]
  - BLOOD CULTURE POSITIVE [None]
  - CANDIDIASIS [None]
  - COMPUTERISED TOMOGRAM ABNORMAL [None]
  - FEBRILE NEUTROPENIA [None]
  - FLUID OVERLOAD [None]
  - INFECTION [None]
  - LEUKAEMIA CUTIS [None]
  - LUNG INFECTION [None]
  - PULMONARY OEDEMA [None]
  - RENAL FAILURE ACUTE [None]
